FAERS Safety Report 13609565 (Version 1)
Quarter: 2017Q2

REPORT INFORMATION
  Report Type: Spontaneous
  Country: US (occurrence: US)
  Receive Date: 20170602
  Receipt Date: 20170602
  Transmission Date: 20170830
  Serious: No
  Sender: FDA-Public Use
  Company Number: US-PFIZER INC-2867545

PATIENT
  Age: 93 Year
  Sex: Female
  Weight: 47 kg

DRUGS (6)
  1. SODIUM CHLORIDE. [Suspect]
     Active Substance: SODIUM CHLORIDE
     Indication: PRODUCT USED FOR UNKNOWN INDICATION
     Dosage: UNK
     Route: 041
     Dates: start: 20150430, end: 20150503
  2. AZITHROMYCIN ANHYDROUS. [Suspect]
     Active Substance: AZITHROMYCIN ANHYDROUS
     Indication: PNEUMONIA
     Dosage: 500 MG, DAILY
     Route: 041
     Dates: start: 20150430, end: 20150503
  3. LOSARTAN. [Concomitant]
     Active Substance: LOSARTAN
     Indication: HYPERTENSION
     Dosage: 50 MG, DAILY
     Route: 048
  4. NORVASC [Concomitant]
     Active Substance: AMLODIPINE BESYLATE
     Indication: HYPERTENSION
     Dosage: 2.5 MG, DAILY
     Route: 048
  5. IMDUR [Concomitant]
     Active Substance: ISOSORBIDE MONONITRATE
     Indication: ANGINA PECTORIS
     Dosage: 60 MG, DAILY
     Route: 048
  6. WARFARIN [Concomitant]
     Active Substance: WARFARIN
     Indication: CORONARY ARTERY DISEASE
     Dosage: VARIABLE DOSE, DAILY
     Route: 048

REACTIONS (6)
  - Poor quality drug administered [Recovered/Resolved]
  - Product colour issue [Recovered/Resolved]
  - Peripheral swelling [Recovered/Resolved]
  - Infusion site rash [Recovered/Resolved]
  - Erythema [Recovered/Resolved]
  - Infusion site pain [Recovered/Resolved]

NARRATIVE: CASE EVENT DATE: 20150503
